FAERS Safety Report 6781884-9 (Version None)
Quarter: 2010Q2

REPORT INFORMATION
  Report Type: 
  Country: None (occurrence: None)
  Receive Date: 20100618
  Receipt Date: 20100618
  Transmission Date: 20101027
  Serious: Yes (Other)
  Sender: FDA-Public Use
  Company Number: None

PATIENT
  Sex: Female
  Weight: 54.2 kg

DRUGS (4)
  1. PANTOPRAZOLE [Suspect]
     Indication: GASTROINTESTINAL DISORDER
     Dosage: 40 MG QHS IV
     Route: 042
     Dates: start: 20100603
  2. PANTOPRAZOLE [Suspect]
     Indication: PROPHYLAXIS
     Dosage: 40 MG QHS IV
     Route: 042
     Dates: start: 20100603
  3. PANTOPRAZOLE [Suspect]
     Indication: GASTROINTESTINAL DISORDER
     Dosage: 40 MG QHS IV
     Route: 042
     Dates: start: 20100607
  4. PANTOPRAZOLE [Suspect]
     Indication: PROPHYLAXIS
     Dosage: 40 MG QHS IV
     Route: 042
     Dates: start: 20100607

REACTIONS (1)
  - THROMBOCYTOPENIA [None]
